FAERS Safety Report 10698338 (Version 1)
Quarter: 2014Q4

REPORT INFORMATION
  Report Type: Spontaneous
  Country: US (occurrence: None)
  Receive Date: 20141224
  Receipt Date: 20141224
  Transmission Date: 20150529
  Serious: Yes (Hospitalization)
  Sender: FDA-Public Use
  Company Number: PHEH2014US023007

PATIENT
  Sex: Female

DRUGS (1)
  1. AFINITOR [Suspect]
     Active Substance: EVEROLIMUS
     Indication: PRODUCT USED FOR UNKNOWN INDICATION
     Dosage: , UNKNOWN

REACTIONS (3)
  - Gastric haemorrhage [None]
  - Haemoglobin decreased [None]
  - Faeces discoloured [None]

NARRATIVE: CASE EVENT DATE: 20141012
